FAERS Safety Report 20077305 (Version 3)
Quarter: 2021Q4

REPORT INFORMATION
  Report Type: Spontaneous
  Country: US (occurrence: US)
  Receive Date: 20211116
  Receipt Date: 20211124
  Transmission Date: 20220303
  Serious: Yes (Death, Hospitalization, Other)
  Sender: FDA-Public Use
  Company Number: US-009507513-2111USA003090

PATIENT
  Sex: Female
  Weight: 88.435 kg

DRUGS (2)
  1. KEYTRUDA [Suspect]
     Active Substance: PEMBROLIZUMAB
     Indication: Lung neoplasm malignant
     Dosage: 200 MG EVERY 21 DAYS
     Route: 042
     Dates: start: 20211005
  2. KEYTRUDA [Suspect]
     Active Substance: PEMBROLIZUMAB
     Indication: Metastases to spine

REACTIONS (5)
  - Death [Fatal]
  - COVID-19 [Unknown]
  - Anxiety [Unknown]
  - Agitation [Unknown]
  - Pain [Unknown]

NARRATIVE: CASE EVENT DATE: 20210101
